FAERS Safety Report 20500064 (Version 5)
Quarter: 2024Q4

REPORT INFORMATION
  Report Type: Other
  Country: GB (occurrence: GB)
  Receive Date: 20220222
  Receipt Date: 20241128
  Transmission Date: 20250115
  Serious: Yes (Other)
  Sender: STRIDES
  Company Number: None

PATIENT
  Sex: Male

DRUGS (73)
  1. OLANZAPINE [Suspect]
     Active Substance: OLANZAPINE
     Indication: Product used for unknown indication
     Dosage: 5 MILLIGRAM QD
     Route: 048
  2. OLANZAPINE [Suspect]
     Active Substance: OLANZAPINE
     Dosage: 10 MG, QD (PER DAY)(TABLET, UNCOATED)
     Route: 048
  3. OLANZAPINE [Suspect]
     Active Substance: OLANZAPINE
     Dosage: 10 MILLIGRAM, PER DAY
     Route: 065
  4. OLANZAPINE [Suspect]
     Active Substance: OLANZAPINE
     Dosage: 10 MILLIGRAM, PRN (QD) (TABLET UNCOATED)
     Route: 065
  5. OLANZAPINE [Suspect]
     Active Substance: OLANZAPINE
     Dosage: 5 MILLIGRAM, ONCE A DAY
     Route: 065
  6. OLANZAPINE [Suspect]
     Active Substance: OLANZAPINE
     Dosage: 10 MILLIGRAM QD PRN, TABLET UNCOATED
     Route: 048
  7. PROMETHAZINE HYDROCHLORIDE [Suspect]
     Active Substance: PROMETHAZINE HYDROCHLORIDE
     Indication: Product used for unknown indication
     Dosage: 25 MILLIGRAM, QD/ PER DAY (AT NIGHT)
     Route: 065
  8. PROMETHAZINE HYDROCHLORIDE [Suspect]
     Active Substance: PROMETHAZINE HYDROCHLORIDE
     Dosage: 25 MILLIGRAM, PER DAY AT NIGHT(TABLET UNCOATED)
     Route: 048
  9. PROMETHAZINE HYDROCHLORIDE [Suspect]
     Active Substance: PROMETHAZINE HYDROCHLORIDE
     Dosage: 25 MILLIGRAM,UNK NOCTE
     Route: 065
  10. PROMETHAZINE HYDROCHLORIDE [Suspect]
     Active Substance: PROMETHAZINE HYDROCHLORIDE
     Dosage: 25 MILLIGRAM, QD (ONCE A DAY, AT NIGHT ) TABLET UNCOATED
     Route: 048
  11. AZATHIOPRINE [Suspect]
     Active Substance: AZATHIOPRINE
     Indication: Colitis
     Dosage: 75 MILLIGRAM, QD (ONCE A DAY) DAILY WITH OR JUST AFTER FOOD/ MORNING, LUNCH AND TEA TIME (WITH OR JU
     Route: 048
  12. AZATHIOPRINE [Suspect]
     Active Substance: AZATHIOPRINE
     Dosage: 25 MILLIGRAM, QD (MORNING, LUNCH AND TEA TIME (WITH OR JUST AFTER FOOD/MEAL)), TABLET UNCOATED
     Route: 048
  13. AZATHIOPRINE [Suspect]
     Active Substance: AZATHIOPRINE
     Dosage: 75 MILLIGRAM, DAILY,WITH OR JUST AFTER FOOD/ MORNING, LUNCH AND TEA TIME (WITH OR JUST AFTER FOOD/ME
     Route: 048
  14. AZATHIOPRINE [Suspect]
     Active Substance: AZATHIOPRINE
     Dosage: 75 MILLIGRAM, PER DAY
     Route: 065
  15. AZATHIOPRINE [Suspect]
     Active Substance: AZATHIOPRINE
     Dosage: 25 MILLIGRAM, QD (MORNING, LUNCH AND TEA TIME (WITH OR JUST AFTER FOOD/MEAL))
     Route: 065
  16. AZATHIOPRINE [Suspect]
     Active Substance: AZATHIOPRINE
     Dosage: 25 MILLIGRAM, EVERY 8 HRS (Q8H (MORNING, LUNCH AND TEA TIME (WITH OR JUST AFTER FOOD/MEAL))
     Route: 048
  17. AZATHIOPRINE [Suspect]
     Active Substance: AZATHIOPRINE
     Dosage: 75 MILLIGRAM, EVERY 8 HOURS (MORNING, LUNCH AND TEA TIME (WITH OR JUST AFTER FOOD/MEAL)
     Route: 048
  18. AZATHIOPRINE [Suspect]
     Active Substance: AZATHIOPRINE
     Dosage: 75 MILLIGRAM, PER DAY
     Route: 048
  19. AZATHIOPRINE [Suspect]
     Active Substance: AZATHIOPRINE
     Dosage: 25 MILLIGRAM, DAILY (MORNING, LUNCH AND TEA TIME)
     Route: 048
  20. AZATHIOPRINE [Suspect]
     Active Substance: AZATHIOPRINE
     Dosage: 75 MILLIGRAM, ONCE A DAY,(MORNING, LUNCH AND TEA TIME)
     Route: 048
  21. FERROUS GLUCONATE [Suspect]
     Active Substance: FERROUS GLUCONATE
     Indication: Anaemia
     Dosage: 420 MILLIGRAM, BID
     Route: 048
  22. FERROUS GLUCONATE [Suspect]
     Active Substance: FERROUS GLUCONATE
     Dosage: 210 MILLIGRAM, BID
     Route: 048
  23. FERROUS GLUCONATE [Suspect]
     Active Substance: FERROUS GLUCONATE
     Dosage: 840 MILLIGRAM, QD
     Route: 048
  24. FERROUS FUMARATE [Suspect]
     Active Substance: FERROUS FUMARATE
     Indication: Anaemia
     Dosage: 420 MILLIGRAM, DAILY (MORNING AND NIGHT), TABLET UNCOATED
     Route: 048
  25. FERROUS FUMARATE [Suspect]
     Active Substance: FERROUS FUMARATE
     Dosage: 210 MILLIGRAM, QD (ONCE A DAY), MORNING AND NIGHT
     Route: 065
  26. FERROUS FUMARATE [Suspect]
     Active Substance: FERROUS FUMARATE
     Dosage: 840 MILLIGRAM,QD (ONCE A DAY) (MORNING AND NIGHT) TABLET UNCOATED
     Route: 048
  27. FERROUS FUMARATE [Suspect]
     Active Substance: FERROUS FUMARATE
     Dosage: 420 MILLIGRAM, PER DAY
     Route: 048
  28. FERROUS FUMARATE [Suspect]
     Active Substance: FERROUS FUMARATE
     Dosage: 210 MILLIGRAM, EVERY 12 HRS, MORNING AND NIGHT(TABLET, UNCOATED)
     Route: 048
  29. FERROUS FUMARATE [Suspect]
     Active Substance: FERROUS FUMARATE
     Dosage: 420 MILLIGRAM, PER DAY
     Route: 065
  30. FERROUS FUMARATE [Suspect]
     Active Substance: FERROUS FUMARATE
     Dosage: 840 MILLIGRAM,QD (ONCE A DAY) (MORNING AND NIGHT)
     Route: 065
  31. FERROUS FUMARATE [Suspect]
     Active Substance: FERROUS FUMARATE
     Dosage: 210 MILLIGRAM, UNK
     Route: 048
  32. FERROUS FUMARATE [Suspect]
     Active Substance: FERROUS FUMARATE
     Dosage: 420 MILLIGRAM, BID (MORNING AND NIGHT), TABLET (UNCOATED
     Route: 048
  33. FERROUS FUMARATE [Suspect]
     Active Substance: FERROUS FUMARATE
     Dosage: 210 MILLIGRAM, BID (MORNING AND NIGHT),(TABLET UNCOATED)
     Route: 048
  34. FERROUS FUMARATE [Suspect]
     Active Substance: FERROUS FUMARATE
     Dosage: 210 MILLIGRAM, QD MORNING AND NIGHT; TABLET UNCOATED
     Route: 048
  35. FERROUS FUMARATE [Suspect]
     Active Substance: FERROUS FUMARATE
     Dosage: 210 MILLIGRAM, BID (210 MILLIGRAM, (TWO TIMES A DAY) TABLET UNCOATED) (
     Route: 048
  36. ESCITALOPRAM [Suspect]
     Active Substance: ESCITALOPRAM OXALATE
     Indication: Product used for unknown indication
     Dosage: 10 MILLIGRAM, EVERY MORNING (ONCE A DAY) (QD) TABLET UNCOATED(INGREDIENT ESCITALOPRAM OXALATE)
     Route: 048
  37. ESCITALOPRAM [Suspect]
     Active Substance: ESCITALOPRAM OXALATE
     Dosage: 10 MILLIGRAM, EVERY MORNING (PER DAY)
     Route: 065
  38. DIHYDROCODEINE [Suspect]
     Active Substance: DIHYDROCODEINE
     Indication: Pain
     Dosage: 2 DOSAGE FORM, AS NECESSARY (TWO TO BE TAKEN FOUR TIMES A DAY IF REQUIRED) (EVERY 6 HRS)
     Route: 048
  39. DIHYDROCODEINE [Suspect]
     Active Substance: DIHYDROCODEINE
     Dosage: 60 MG, PRN (WITH OR JUST AFTER FOOD/MEAL) AS NECESSARY (EVERY 6 HRS), 240 MG PER DAY
     Route: 048
  40. DIHYDROCODEINE [Suspect]
     Active Substance: DIHYDROCODEINE
     Dosage: 60 MILLIGRAM, QD
     Route: 048
  41. DIHYDROCODEINE [Suspect]
     Active Substance: DIHYDROCODEINE
     Dosage: 240 MILLIGRAM, PER DAY (4 TIMES A DAY, WITH OR JUST AFTER FOOD/MEAL)/ EVERY 6 HRS, TABLET UNCOATED
     Route: 048
  42. DIHYDROCODEINE [Suspect]
     Active Substance: DIHYDROCODEINE
     Dosage: 60 MG, PRN FOUR TIMES A DAY. TAKE WITH OR JUST AFTER FOOD.
     Route: 065
  43. DIHYDROCODEINE [Suspect]
     Active Substance: DIHYDROCODEINE
     Dosage: 240 MILLIGRAM, QID (FOUR TIMES DAILY)
     Route: 048
  44. DIHYDROCODEINE [Suspect]
     Active Substance: DIHYDROCODEINE
     Dosage: 2 DOSAGE FORM, PRN (TWO TO BE TAKEN FOUR TIMES A DAY IF REQUIRED)
     Route: 065
  45. DIHYDROCODEINE [Suspect]
     Active Substance: DIHYDROCODEINE
     Dosage: 60 MILLIGRAM, QID (FOUR TIMES DAILY WITH OR JUST AFTER MEAL)
     Route: 065
  46. DIHYDROCODEINE [Suspect]
     Active Substance: DIHYDROCODEINE
     Dosage: 60 MILLIGRAM,PRN, AS NECESSARY
     Route: 065
  47. DIHYDROCODEINE [Suspect]
     Active Substance: DIHYDROCODEINE
     Dosage: 8 DOSAGE FORM, QD
     Route: 048
  48. DIHYDROCODEINE [Suspect]
     Active Substance: DIHYDROCODEINE
     Dosage: 60 MILLIGRAM, PRN
     Route: 065
  49. DIHYDROCODEINE [Suspect]
     Active Substance: DIHYDROCODEINE
     Dosage: 240 MILLIGRAM, EVERY 6 HRS (Q6H, FOUR TIMES DAILY. WITH OR JUST AFTER FOOD/MEAL),(TABLET UNCOATED)
     Route: 048
  50. DIHYDROCODEINE [Suspect]
     Active Substance: DIHYDROCODEINE
     Dosage: 60 MILLIGRAM, EVERY 6 HRS (Q6H TWO TO BE TAKEN FOUR TIMES A DAY IF REQUIRED)
     Route: 048
  51. DIHYDROCODEINE [Suspect]
     Active Substance: DIHYDROCODEINE
     Dosage: 2 DOSAGE FORM, EVERY 6 HRS (Q6H, AS NECESSARY,TWO TO BE TAKEN FOUR TIMES A DAY IF REQUIRED. RECEIVED
     Route: 048
  52. DIHYDROCODEINE [Suspect]
     Active Substance: DIHYDROCODEINE
     Dosage: 60 MILLIGRAM, PER DAY (ONCE A DAY),TABLET (UNCOATED, ORAL)
     Route: 065
  53. DIHYDROCODEINE [Suspect]
     Active Substance: DIHYDROCODEINE
     Dosage: 60 MILLIGRAM, FOUR TIMES DAILY,(WITH OR JUST AFTER FOOD/MEAL), TABLET(UNCOATED)
     Route: 048
  54. DIHYDROCODEINE [Suspect]
     Active Substance: DIHYDROCODEINE
     Dosage: 8 DOSAGE FORM, PER DAY (TWO TO BE TAKEN FOUR TIMES A DAY IF REQUIRED, AS NECESSARY),TABLET UNCOATED
     Route: 048
  55. DIHYDROCODEINE [Suspect]
     Active Substance: DIHYDROCODEINE
     Dosage: 8 DOSAGE FORM, Q4H PER DAY (TWO TO BE TAKEN FOUR TIMES A DAY IF REQUIRED, AS NECESSARY)
     Route: 048
  56. DIHYDROCODEINE [Suspect]
     Active Substance: DIHYDROCODEINE
     Dosage: 2 DOSAGE FORM,(2 DOSAGE FORM, PRN (DIHYDROCODEINE TARTRATE) (2 DOSAGE FORM, AS NECESSARY,TWO TO BE T
     Route: 048
  57. DIHYDROCODEINE [Suspect]
     Active Substance: DIHYDROCODEINE
     Dosage: 8 DOSAGE FORM, QD, 2 DOSAGE FORM, AS NECESSARY,TWO TO BE TAKEN FOUR TIMES A DAY IF REQUIRED. RECE...
     Route: 048
  58. DIHYDROCODEINE [Suspect]
     Active Substance: DIHYDROCODEINE
     Dosage: 60 MILLIGRAM, PRN (DIHYDROCODEINE TARTRATE), ONCE A DAY/ FOUR TIMES DAILY. WITH OR JUST AFTER FOOD;
     Route: 048
  59. DIHYDROCODEINE [Suspect]
     Active Substance: DIHYDROCODEINE
     Dosage: 240 MILLIGRAM, QD (FOUR TIMES DAILY. WITH OR JUST AFTER FOOD/MEAL); TABLET  UNCOATED
     Route: 048
  60. DIHYDROCODEINE [Suspect]
     Active Substance: DIHYDROCODEINE
     Dosage: 60 MILLIGRAM, QD, QID, FOUR TIMES DAILY. WITH OR JUST AFTER FOOD/MEAL); TABLET UNCOATED
     Route: 048
  61. DIHYDROCODEINE [Suspect]
     Active Substance: DIHYDROCODEINE
     Dosage: 60 MILLIGRAM, QID, TABLET UNCOATED
     Route: 048
  62. DIHYDROCODEINE [Suspect]
     Active Substance: DIHYDROCODEINE
     Dosage: 240 MILLIGRAM, QID (FOUR TIMES DAILY. WITH OR JUST AFTER FOOD/MEAL)
     Route: 065
  63. MIRTAZAPINE [Suspect]
     Active Substance: MIRTAZAPINE
     Indication: Product used for unknown indication
     Dosage: 30 MILLIGRAM, AT BED TIME (ONCE A DAY, NIGHT)
     Route: 048
  64. MIRTAZAPINE [Suspect]
     Active Substance: MIRTAZAPINE
     Dosage: 30 MILLIGRAM, UNK, NOCTE
     Route: 048
  65. MIRTAZAPINE [Suspect]
     Active Substance: MIRTAZAPINE
     Dosage: 30 MILLIGRAM,ONCE A DAY, NIGHT , FILM-COATED TABLET
     Route: 048
  66. FOLIC ACID [Suspect]
     Active Substance: FOLIC ACID
     Indication: Folate deficiency
     Dosage: 5 MILLIGRAM, DAILY EVERY MORNING, QD (ONCE A DAY),TABLET(UNCOATED)
     Route: 048
  67. FOLIC ACID [Suspect]
     Active Substance: FOLIC ACID
     Dosage: 5 MILLIGRAM, PER DAY
     Route: 048
  68. FOLIC ACID [Suspect]
     Active Substance: FOLIC ACID
     Dosage: 5 MILLIGRAM, PER DAY
     Route: 065
  69. FOLIC ACID [Suspect]
     Active Substance: FOLIC ACID
     Dosage: 5 MILLIGRAM, EVERY MORNING, DAILY
     Route: 065
  70. FOLIC ACID [Suspect]
     Active Substance: FOLIC ACID
     Dosage: 5 MILLIGRAM , QD, MORNING (TABLET UNCOATED)
     Route: 048
  71. FOLIC ACID [Suspect]
     Active Substance: FOLIC ACID
     Dosage: UNK
     Route: 065
  72. IRON [Suspect]
     Active Substance: IRON
     Indication: Anaemia
     Dosage: 210 MILLIGRAM, BID
     Route: 048
  73. IRON [Suspect]
     Active Substance: IRON
     Dosage: 410 MILLIGRAM, QD
     Route: 048

REACTIONS (4)
  - Autoscopy [Unknown]
  - Seizure [Unknown]
  - Overdose [Unknown]
  - Off label use [Unknown]
